FAERS Safety Report 6041195-6 (Version None)
Quarter: 2009Q1

REPORT INFORMATION
  Report Type: 
  Country: None (occurrence: None)
  Receive Date: 20090116
  Receipt Date: 20080915
  Transmission Date: 20090719
  Serious: No
  Sender: FDA-Public Use
  Company Number: US-BRISTOL-MYERS SQUIBB COMPANY-14336150

PATIENT
  Age: 48 Year
  Sex: Female
  Weight: 82 kg

DRUGS (2)
  1. ABILIFY [Suspect]
     Indication: DEPRESSION
     Dosage: BEGAN 1 1/2 YEARS AGO, STOPPED AND RESTARTED 2 TIMES
  2. LEXAPRO [Suspect]

REACTIONS (1)
  - WEIGHT INCREASED [None]
